FAERS Safety Report 5838715-0 (Version None)
Quarter: 2008Q3

REPORT INFORMATION
  Report Type: 
  Country: None (occurrence: None)
  Receive Date: 20080808
  Receipt Date: 20080729
  Transmission Date: 20090109
  Serious: Yes (Hospitalization)
  Sender: FDA-Public Use
  Company Number: B0531497A

PATIENT
  Age: 52 Year
  Sex: Female

DRUGS (3)
  1. LAPATINIB [Suspect]
     Dosage: 1250MG PER DAY
     Route: 048
     Dates: start: 20080128
  2. CAPECITABINE [Suspect]
     Dosage: 1800MG TWICE PER DAY
     Route: 048
     Dates: start: 20080128
  3. WARFARIN SODIUM [Concomitant]
     Indication: PULMONARY EMBOLISM
     Route: 048

REACTIONS (3)
  - DYSPNOEA [None]
  - INFECTION [None]
  - PYREXIA [None]
